FAERS Safety Report 21590831 (Version 1)
Quarter: 2022Q4

REPORT INFORMATION
  Report Type: Spontaneous
  Country: US (occurrence: US)
  Receive Date: 20221114
  Receipt Date: 20221114
  Transmission Date: 20230113
  Serious: No
  Sender: FDA-Public Use
  Company Number: US-BRISTOL-MYERS SQUIBB COMPANY-2022-136445

PATIENT
  Age: 75 Year
  Sex: Male
  Weight: 56.200 kg

DRUGS (17)
  1. ORENCIA [Suspect]
     Active Substance: ABATACEPT
     Indication: Rheumatoid factor
     Dosage: DOSE : 750MG;     FREQ : EVERY 4 WEEKS
     Route: 042
  2. ORENCIA [Suspect]
     Active Substance: ABATACEPT
     Dosage: DOSE : 750MG;     FREQ : EVERY 4 WEEKS
     Route: 042
  3. METFORMIN HYDROCHLORIDE [Concomitant]
     Active Substance: METFORMIN HYDROCHLORIDE
  4. LYRICA [Concomitant]
     Active Substance: PREGABALIN
  5. ALENDRONATE [Concomitant]
     Active Substance: ALENDRONATE SODIUM
  6. MIRALAX [Concomitant]
     Active Substance: POLYETHYLENE GLYCOL 3350
  7. OMEPRAZOLE [Concomitant]
     Active Substance: OMEPRAZOLE
  8. PREDNISONE [Concomitant]
     Active Substance: PREDNISONE
  9. TAMSULOSIN [Concomitant]
     Active Substance: TAMSULOSIN
  10. TRULICITY [Concomitant]
     Active Substance: DULAGLUTIDE
  11. XANAX [Concomitant]
     Active Substance: ALPRAZOLAM
  12. ATORVASTATIN [Concomitant]
     Active Substance: ATORVASTATIN
  13. CINNAMON\HERBALS [Concomitant]
     Active Substance: CINNAMON\HERBALS
  14. DIVALPROEX SODIUM [Concomitant]
     Active Substance: DIVALPROEX SODIUM
     Dosage: CYCLOBENFOR SPELLED BY REP
  15. ACETAMINOPHEN\CAFFEINE [Concomitant]
     Active Substance: ACETAMINOPHEN\CAFFEINE
  16. FINASTERIDE [Concomitant]
     Active Substance: FINASTERIDE
  17. VITAMIN B12 [Concomitant]
     Active Substance: CYANOCOBALAMIN

REACTIONS (1)
  - Weight decreased [Unknown]
